FAERS Safety Report 6451084-0 (Version None)
Quarter: 2009Q4

REPORT INFORMATION
  Report Type: 
  Country: None (occurrence: None)
  Receive Date: 20091123
  Receipt Date: 20091111
  Transmission Date: 20100525
  Serious: Yes (Other)
  Sender: FDA-Public Use
  Company Number: US-PFIZER INC-2009297513

PATIENT
  Sex: Female
  Weight: 111.13 kg

DRUGS (8)
  1. DETROL [Suspect]
     Indication: INCONTINENCE
  2. DETROL LA [Suspect]
     Indication: INCONTINENCE
     Dosage: 4 MG, 1X/DAY
     Dates: start: 20090901
  3. NORCO [Concomitant]
  4. CYMBALTA [Concomitant]
  5. ASPIRIN [Concomitant]
  6. IMDUR [Concomitant]
  7. PRAVASTATIN [Concomitant]
  8. QUINAPRIL HYDROCHLORIDE [Concomitant]

REACTIONS (3)
  - CONSTIPATION [None]
  - DIABETES MELLITUS [None]
  - DRUG INEFFECTIVE [None]
